FAERS Safety Report 19932669 (Version 1)
Quarter: 2021Q4

REPORT INFORMATION
  Report Type: Spontaneous
  Country: TN (occurrence: TN)
  Receive Date: 20211008
  Receipt Date: 20211008
  Transmission Date: 20220303
  Serious: Yes (Disabling)
  Sender: FDA-Public Use
  Company Number: TN-ABBVIE-21K-160-4109024-00

PATIENT
  Sex: Female

DRUGS (4)
  1. VALPROATE SODIUM [Suspect]
     Active Substance: VALPROATE SODIUM
     Indication: Bipolar disorder
     Route: 065
     Dates: start: 20171120, end: 20181205
  2. SERVAL [Concomitant]
     Indication: Product used for unknown indication
  3. ZOLPIDEM TARTRATE [Concomitant]
     Active Substance: ZOLPIDEM TARTRATE
     Indication: Product used for unknown indication
  4. TEMESTA [Concomitant]
     Indication: Product used for unknown indication

REACTIONS (1)
  - Hypoacusis [Unknown]
